FAERS Safety Report 4792299-7 (Version None)
Quarter: 2005Q4

REPORT INFORMATION
  Report Type: 
  Country: None (occurrence: None)
  Receive Date: 20051007
  Receipt Date: 20050929
  Transmission Date: 20060501
  Serious: Yes (Hospitalization)
  Sender: FDA-Public Use
  Company Number: US-MERCK-0510USA00271

PATIENT
  Age: 45 Year
  Sex: Female
  Weight: 100 kg

DRUGS (2)
  1. VIOXX [Suspect]
     Indication: SPONDYLITIS
     Route: 048
     Dates: start: 20000101, end: 20031001
  2. TYLENOL (CAPLET) [Concomitant]
     Route: 048

REACTIONS (4)
  - CEREBROVASCULAR ACCIDENT [None]
  - CONDITION AGGRAVATED [None]
  - DEPRESSION [None]
  - MIGRAINE [None]
